FAERS Safety Report 7402161-9 (Version None)
Quarter: 2011Q1

REPORT INFORMATION
  Report Type: 
  Country: None (occurrence: None)
  Receive Date: 20110330
  Receipt Date: 20110317
  Transmission Date: 20110831
  Serious: Yes (Disabling)
  Sender: FDA-Public Use
  Company Number: 1000019201

PATIENT
  Age: 56 Year
  Sex: Female
  Weight: 47 kg

DRUGS (5)
  1. FLUTICASONE (FLUTICASONE) (FLUTICASONE) [Concomitant]
  2. ROFLUMILAST (ROFLUMILAST) (500 MICROGRAM, TABLETS) [Suspect]
     Indication: CHRONIC OBSTRUCTIVE PULMONARY DISEASE
     Dosage: 500 MCG (500 MCG, 1 IN 1 D),ORAL
     Route: 048
     Dates: start: 20110221, end: 20110225
  3. FLUOXETINE [Concomitant]
  4. BRONCHODILATOR NOS (BRONCI-IODILATOR) (BRONCHODILATOR) [Concomitant]
  5. SINGULAIR (MONTELUKAST) (MONTELUKAST) [Concomitant]

REACTIONS (9)
  - NAUSEA [None]
  - HEADACHE [None]
  - DEPRESSION [None]
  - STOMATITIS [None]
  - CONDITION AGGRAVATED [None]
  - ARRHYTHMIA [None]
  - MYALGIA [None]
  - ABDOMINAL PAIN UPPER [None]
  - TREMOR [None]
